FAERS Safety Report 13603688 (Version 1)
Quarter: 2017Q2

REPORT INFORMATION
  Report Type: Spontaneous
  Country: DE (occurrence: DE)
  Receive Date: 20170601
  Receipt Date: 20170601
  Transmission Date: 20170830
  Serious: Yes (Other)
  Sender: FDA-Public Use
  Company Number: DE-ROCHE-1824342

PATIENT
  Sex: Female

DRUGS (5)
  1. DOXORUBICIN [Concomitant]
     Active Substance: DOXORUBICIN
  2. CYCLOPHOSPHAMID [Concomitant]
     Active Substance: CYCLOPHOSPHAMIDE
  3. MABTHERA [Suspect]
     Active Substance: RITUXIMAB
     Indication: B-CELL LYMPHOMA
     Dosage: 6 CYCLES
     Route: 042
     Dates: start: 201603, end: 201605
  4. PREDNISOLON [Concomitant]
     Active Substance: PREDNISOLONE
  5. VINCRISTIN [Concomitant]
     Active Substance: VINCRISTINE

REACTIONS (4)
  - Wound dehiscence [Unknown]
  - Ileus [Unknown]
  - B-lymphocyte count decreased [Unknown]
  - Maternal exposure during pregnancy [Unknown]
